FAERS Safety Report 6332299-9 (Version None)
Quarter: 2009Q3

REPORT INFORMATION
  Report Type: 
  Country: None (occurrence: None)
  Receive Date: 20090828
  Receipt Date: 20090819
  Transmission Date: 20100115
  Serious: Yes (Hospitalization, Other)
  Sender: FDA-Public Use
  Company Number: PHHY2009GB35468

PATIENT
  Age: 26 Year
  Sex: Male

DRUGS (6)
  1. TEGRETOL [Suspect]
     Dosage: UNK
     Dates: end: 20090301
  2. DULCOLAX [Suspect]
     Indication: CONSTIPATION
     Dosage: UNK
     Route: 054
  3. BACLOFEN [Concomitant]
  4. LAMOTRIGINE [Concomitant]
  5. NULYTELY [Concomitant]
  6. OMEPRAZOLE [Concomitant]

REACTIONS (6)
  - BONE MARROW FAILURE [None]
  - GASTROINTESTINAL HAEMORRHAGE [None]
  - INTENTIONAL DRUG MISUSE [None]
  - MELAENA [None]
  - PANCYTOPENIA [None]
  - WHITE BLOOD CELL COUNT DECREASED [None]
